FAERS Safety Report 9638959 (Version 1)
Quarter: 2013Q4

REPORT INFORMATION
  Report Type: Spontaneous
  Country: US (occurrence: US)
  Receive Date: 20131022
  Receipt Date: 20131022
  Transmission Date: 20140711
  Serious: Yes (Other)
  Sender: FDA-Public Use
  Company Number: US-ACTAVIS-2013-18479

PATIENT
  Sex: Female

DRUGS (2)
  1. HYDROCHLOROTHIAZIDE (WATSON LABORATORIES)(HYDROCHLOROTHIAZIDE) UNK, UNKUNK [Suspect]
     Indication: SWELLING
     Dosage: PRN
     Route: 065
     Dates: start: 2012
  2. DIOVAN [Concomitant]
     Indication: PRODUCT USED FOR UNKNOWN INDICATION
     Dosage: UNK, UNKNOWN
     Route: 065

REACTIONS (1)
  - Convulsion [Recovered/Resolved]
